FAERS Safety Report 10558529 (Version 1)
Quarter: 2014Q4

REPORT INFORMATION
  Report Type: Other
  Country: US (occurrence: US)
  Receive Date: 20141031
  Receipt Date: 20141031
  Transmission Date: 20150529
  Serious: Yes (Hospitalization)
  Sender: FDA-Public Use
  Company Number: US-SPECTRUM PHARMACEUTICALS, INC.-14-B-US-00300

PATIENT
  Age: 49 Year
  Sex: Male

DRUGS (12)
  1. METHYLPHENIDATE [Concomitant]
     Active Substance: METHYLPHENIDATE
     Indication: PRODUCT USED FOR UNKNOWN INDICATION
     Dosage: 10 MG, BID
     Route: 048
  2. NAPROXEN. [Concomitant]
     Active Substance: NAPROXEN
     Indication: PRODUCT USED FOR UNKNOWN INDICATION
     Dosage: 1-2 DF QD, AS REQUIRED
     Route: 048
  3. BELINOSTAT [Suspect]
     Active Substance: BELINOSTAT
     Indication: ACUTE MYELOID LEUKAEMIA
     Dosage: UNK UNK, QD, C29D3
     Route: 042
     Dates: start: 20141015, end: 20141015
  4. ACYCLOVIR                          /00587301/ [Concomitant]
     Active Substance: ACYCLOVIR
     Indication: PRODUCT USED FOR UNKNOWN INDICATION
     Dosage: 400 MG, BID
     Route: 048
  5. MILK OF MAGNESIA [Concomitant]
     Active Substance: MAGNESIUM HYDROXIDE
     Indication: CONSTIPATION
     Dosage: OCCASIONALLY
  6. GAS-X [Concomitant]
     Active Substance: DIMETHICONE
     Indication: PRODUCT USED FOR UNKNOWN INDICATION
     Dosage: UNK, AS REQUIRED
     Route: 048
  7. VELCADE [Suspect]
     Active Substance: BORTEZOMIB
     Indication: ACUTE MYELOID LEUKAEMIA
     Dosage: UNK UNK, QD, CYCLICAL C29D2
     Route: 042
     Dates: start: 20141014, end: 20141014
  8. LYSINE [Concomitant]
     Active Substance: LYSINE
     Indication: ORAL HERPES
     Dosage: 1 DF, QD
  9. PRILOSEC [Concomitant]
     Active Substance: OMEPRAZOLE MAGNESIUM
     Indication: PRODUCT USED FOR UNKNOWN INDICATION
     Dosage: 1 DF, QD
  10. BACLOFEN. [Concomitant]
     Active Substance: BACLOFEN
     Indication: OESOPHAGEAL SPASM
     Dosage: UNK, 1-2 TABLETS PER DAY
     Route: 048
  11. CLARITIN [Concomitant]
     Active Substance: LORATADINE
     Indication: SEASONAL ALLERGY
     Dosage: 10 MG, QD
     Route: 048
  12. LOPERAMIDE [Concomitant]
     Active Substance: LOPERAMIDE
     Indication: PRODUCT USED FOR UNKNOWN INDICATION
     Dosage: UNK, Q4H AS NEEDED
     Route: 048

REACTIONS (4)
  - Oesophageal infection [Recovered/Resolved]
  - Musculoskeletal chest pain [Recovered/Resolved]
  - Oesophageal spasm [None]
  - Dysphagia [Recovered/Resolved]

NARRATIVE: CASE EVENT DATE: 20141016
